FAERS Safety Report 8855734 (Version 1)
Quarter: 2012Q4

REPORT INFORMATION
  Report Type: Spontaneous
  Country: US (occurrence: None)
  Receive Date: 20121019
  Receipt Date: 20121019
  Transmission Date: 20130627
  Serious: Yes (Hospitalization, Disabling)
  Sender: FDA-Public Use
  Company Number: None

PATIENT
  Age: 63 Year
  Sex: Female
  Weight: 55.79 kg

DRUGS (2)
  1. BONIVA [Suspect]
     Indication: OSTEOPENIA
     Dosage: 150mg 1x month
     Dates: start: 2008, end: 2012
  2. FOSAMAX [Suspect]
     Indication: OSTEOPENIA
     Dosage: 1x week
     Dates: start: 2000, end: 2007

REACTIONS (3)
  - Fall [None]
  - Femur fracture [None]
  - Fracture displacement [None]
